FAERS Safety Report 18758375 (Version 1)
Quarter: 2021Q1

REPORT INFORMATION
  Report Type: Report from Study
  Country: None (occurrence: US)
  Receive Date: 20210120
  Receipt Date: 20210120
  Transmission Date: 20210419
  Serious: Yes (Death)
  Sender: FDA-Public Use
  Company Number: US-ABBVIE-21K-163-3737596-00

PATIENT
  Sex: Female

DRUGS (2)
  1. SYNTHROID [Suspect]
     Active Substance: LEVOTHYROXINE SODIUM
     Dosage: EVERY MONDAYS AND FRIDAYS STOP DATE:AT LEAST 30 YEARS AGO
     Route: 048
     Dates: start: 1991, end: 1991
  2. SYNTHROID [Suspect]
     Active Substance: LEVOTHYROXINE SODIUM
     Indication: PRODUCT USED FOR UNKNOWN INDICATION
     Dosage: STOP DATE:AT LEAST 30 YEARS AGO
     Route: 048
     Dates: end: 1991

REACTIONS (1)
  - Dementia Alzheimer^s type [Fatal]
